FAERS Safety Report 15540326 (Version 1)
Quarter: 2018Q4

REPORT INFORMATION
  Report Type: Spontaneous
  Country: US (occurrence: US)
  Receive Date: 20181022
  Receipt Date: 20181022
  Transmission Date: 20190205
  Serious: Yes (Other)
  Sender: FDA-Public Use
  Company Number: None

PATIENT
  Age: 67 Year
  Sex: Female
  Weight: 77.4 kg

DRUGS (9)
  1. CAPECITABINE. [Suspect]
     Active Substance: CAPECITABINE
     Indication: BREAST CANCER FEMALE
     Route: 048
     Dates: start: 20180829, end: 20181019
  2. MULTIVITAMINS [Concomitant]
     Active Substance: VITAMINS
  3. IBRANCE [Concomitant]
     Active Substance: PALBOCICLIB
  4. LORAZEPAM. [Concomitant]
     Active Substance: LORAZEPAM
  5. PROCHLORPERZINE [Concomitant]
     Active Substance: PROCHLORPERAZINE
  6. VITAMIN D [Concomitant]
     Active Substance: CHOLECALCIFEROL
  7. IBUPROFEN. [Concomitant]
     Active Substance: IBUPROFEN
  8. ZOFRAN [Concomitant]
     Active Substance: ONDANSETRON HYDROCHLORIDE
  9. VITAMIN B12 [Concomitant]
     Active Substance: CYANOCOBALAMIN

REACTIONS (6)
  - Pain in extremity [None]
  - Procedural site reaction [None]
  - Dizziness [None]
  - Anxiety [None]
  - Eating disorder [None]
  - Headache [None]
